FAERS Safety Report 13455286 (Version 1)
Quarter: 2017Q2

REPORT INFORMATION
  Report Type: Spontaneous
  Country: US (occurrence: US)
  Receive Date: 20170419
  Receipt Date: 20170419
  Transmission Date: 20170830
  Serious: No
  Sender: FDA-Public Use
  Company Number: US-PFIZER INC-2017165320

PATIENT

DRUGS (2)
  1. TORISEL [Suspect]
     Active Substance: TEMSIROLIMUS
  2. SUTENT [Suspect]
     Active Substance: SUNITINIB MALATE

REACTIONS (1)
  - Neoplasm progression [Unknown]
